FAERS Safety Report 10799143 (Version 1)
Quarter: 2015Q1

REPORT INFORMATION
  Report Type: Spontaneous
  Country: US (occurrence: US)
  Receive Date: 20150216
  Receipt Date: 20150216
  Transmission Date: 20150721
  Serious: No
  Sender: FDA-Public Use
  Company Number: US-ALLERGAN-1401315US

PATIENT
  Age: 69 Year
  Sex: Male

DRUGS (3)
  1. HEART MEDICATION [Concomitant]
     Active Substance: UNSPECIFIED INGREDIENT
     Indication: CARDIAC DISORDER
     Dosage: UNK
     Dates: start: 2011
  2. RESTASIS [Suspect]
     Active Substance: CYCLOSPORINE
     Indication: DRY EYE
     Dosage: 2 GTT, BID
     Route: 047
     Dates: start: 201310
  3. ARTHRITIS MEDICATION [Concomitant]
     Active Substance: UNSPECIFIED INGREDIENT
     Indication: ARTHRITIS
     Dosage: UNK
     Dates: start: 2011

REACTIONS (4)
  - Inappropriate schedule of drug administration [Unknown]
  - Eye irritation [Unknown]
  - Eye pruritus [Recovering/Resolving]
  - Eye pain [Recovering/Resolving]
